FAERS Safety Report 10138863 (Version 1)
Quarter: 2014Q2

REPORT INFORMATION
  Report Type: Spontaneous
  Country: US (occurrence: US)
  Receive Date: 20140429
  Receipt Date: 20140429
  Transmission Date: 20141212
  Serious: No
  Sender: FDA-Public Use
  Company Number: US-PFIZER INC-2014116329

PATIENT
  Sex: Male

DRUGS (3)
  1. TESTOSTERONE CIPIONATE [Suspect]
     Indication: BLOOD TESTOSTERONE DECREASED
     Dosage: 200 MG, MONTHLY
  2. TESTOSTERONE CIPIONATE [Suspect]
     Dosage: 400 MG, MONTHLY
  3. TESTOSTERONE CIPIONATE [Suspect]
     Dosage: 400 MG, EVERY 3 WEEKS

REACTIONS (4)
  - Injection site pain [Unknown]
  - Testicular atrophy [Unknown]
  - Blood oestrogen increased [Unknown]
  - Drug resistance [Unknown]
